APPROVED DRUG PRODUCT: CHILDREN'S CETIRIZINE HYDROCHLORIDE ALLERGY
Active Ingredient: CETIRIZINE HYDROCHLORIDE
Strength: 5MG/5ML
Dosage Form/Route: SOLUTION;ORAL
Application: A201546 | Product #001
Applicant: TARO PHARMACEUTICAL INDUSTRIES LTD
Approved: May 20, 2011 | RLD: No | RS: No | Type: OTC